FAERS Safety Report 9241749 (Version 2)
Quarter: 2013Q4

REPORT INFORMATION
  Report Type: Report from Study
  Country: TH (occurrence: TH)
  Receive Date: 20130419
  Receipt Date: 20131003
  Transmission Date: 20140711
  Serious: Yes (Hospitalization)
  Sender: FDA-Public Use
  Company Number: PHHY2013TH035964

PATIENT
  Age: 76 Year
  Sex: Female

DRUGS (2)
  1. ZOMETA [Suspect]
     Indication: PLASMA CELL MYELOMA
     Dosage: UNK
     Route: 041
  2. ZOMETA [Suspect]
     Dosage: UNK
     Route: 041
     Dates: start: 20130903

REACTIONS (6)
  - Fracture [Unknown]
  - Toothache [Recovered/Resolved]
  - Tooth disorder [Unknown]
  - Tooth loss [Unknown]
  - Gait disturbance [Unknown]
  - Overweight [Unknown]
